FAERS Safety Report 16881105 (Version 1)
Quarter: 2019Q4

REPORT INFORMATION
  Report Type: Spontaneous
  Country: US (occurrence: US)
  Receive Date: 20191003
  Receipt Date: 20191003
  Transmission Date: 20200122
  Serious: Yes (Death)
  Sender: FDA-Public Use
  Company Number: US-B.I. PHARMACEUTICALS,INC./RIDGEFIELD-2019-US-105350

PATIENT
  Sex: Male

DRUGS (4)
  1. GILOTRIF [Suspect]
     Active Substance: AFATINIB
     Indication: LUNG NEOPLASM MALIGNANT
  2. PRIMIDONE. [Concomitant]
     Active Substance: PRIMIDONE
     Indication: PARKINSON^S DISEASE
     Route: 065
  3. GILOTRIF [Suspect]
     Active Substance: AFATINIB
     Indication: OESOPHAGEAL CARCINOMA
     Dosage: 30MG DAILY
     Route: 065
     Dates: start: 20190912, end: 20190930
  4. OXYCODONE [Concomitant]
     Active Substance: OXYCODONE
     Indication: PAIN
     Route: 065

REACTIONS (2)
  - Oesophageal carcinoma [Fatal]
  - Lung neoplasm malignant [Fatal]
